FAERS Safety Report 9173349 (Version 1)
Quarter: 2013Q1

REPORT INFORMATION
  Report Type: Spontaneous
  Country: US (occurrence: None)
  Receive Date: 20130313
  Receipt Date: 20130313
  Transmission Date: 20140127
  Serious: No
  Sender: FDA-Public Use
  Company Number: AEUSA201200244

PATIENT
  Age: 50 Year
  Sex: Female

DRUGS (3)
  1. PROLASTIN-C [Suspect]
     Indication: ALPHA-1 ANTI-TRYPSIN DEFICIENCY
     Dosage: ; QW; IV
     Route: 042
     Dates: start: 201204, end: 20120504
  2. BENADRYL [Concomitant]
  3. PARACETAMOL [Concomitant]

REACTIONS (3)
  - Diarrhoea [None]
  - Petechiae [None]
  - Ecchymosis [None]
